FAERS Safety Report 11897904 (Version 1)
Quarter: 2016Q1

REPORT INFORMATION
  Report Type: Spontaneous
  Country: US (occurrence: None)
  Receive Date: 20160107
  Receipt Date: 20160107
  Transmission Date: 20160526
  Serious: Yes (Disabling, Other)
  Sender: FDA-Public Use
  Company Number: None

PATIENT
  Age: 44 Year
  Sex: Female
  Weight: 58.97 kg

DRUGS (5)
  1. TRIAMTERENE. [Concomitant]
     Active Substance: TRIAMTERENE
  2. VIIBRYD [Suspect]
     Active Substance: VILAZODONE HYDROCHLORIDE
     Indication: ANXIETY
     Dosage: BY MOUTH; 30 TABLETS
     Dates: start: 20150614, end: 20150714
  3. VIIBRYD [Suspect]
     Active Substance: VILAZODONE HYDROCHLORIDE
     Indication: DEPRESSION
     Dosage: BY MOUTH; 30 TABLETS
     Dates: start: 20150614, end: 20150714
  4. ESCITALOPRAM [Suspect]
     Active Substance: ESCITALOPRAM OXALATE
  5. MULTIPLE VITAMIN [Concomitant]
     Active Substance: VITAMINS

REACTIONS (12)
  - Dizziness [None]
  - Head discomfort [None]
  - Balance disorder [None]
  - Weight decreased [None]
  - Drug withdrawal syndrome [None]
  - Asthenia [None]
  - Hypoaesthesia [None]
  - Appetite disorder [None]
  - Drug ineffective [None]
  - Fatigue [None]
  - Insomnia [None]
  - Nausea [None]

NARRATIVE: CASE EVENT DATE: 20150118
